FAERS Safety Report 7248592-1 (Version None)
Quarter: 2011Q1

REPORT INFORMATION
  Report Type: 
  Country: None (occurrence: None)
  Receive Date: 20110128
  Receipt Date: 20101227
  Transmission Date: 20110831
  Serious: Yes (Other)
  Sender: FDA-Public Use
  Company Number: US-BAYER-2010-008603

PATIENT
  Sex: Female
  Weight: 60 kg

DRUGS (1)
  1. ALEVE (CAPLET) [Suspect]
     Indication: BACK PAIN
     Dosage: 220 MG, Q1HR
     Route: 048
     Dates: start: 20101224

REACTIONS (1)
  - BACK PAIN [None]
